FAERS Safety Report 8467897-X (Version None)
Quarter: 2012Q2

REPORT INFORMATION
  Report Type: 
  Country: None (occurrence: None)
  Receive Date: 20120626
  Receipt Date: 20120619
  Transmission Date: 20120825
  Serious: Yes (Disabling)
  Sender: FDA-Public Use
  Company Number: PL-ROCHE-1063299

PATIENT
  Sex: Female

DRUGS (12)
  1. NEULASTA [Concomitant]
     Indication: PROPHYLAXIS
     Route: 048
     Dates: start: 20120609, end: 20120609
  2. SORBIFER DURULES [Concomitant]
     Indication: ANAEMIA
     Route: 048
     Dates: start: 20120401
  3. MABTHERA [Suspect]
     Indication: RHEUMATOID ARTHRITIS
     Route: 042
     Dates: start: 20100929, end: 20101001
  4. MABTHERA [Suspect]
     Route: 042
     Dates: start: 20110401, end: 20110501
  5. ANESTELOC [Concomitant]
     Indication: ULCER
     Route: 048
     Dates: start: 20120401
  6. LIV 52 (POLAND) [Concomitant]
     Route: 048
     Dates: start: 20120401
  7. FLUCONAZOLE [Concomitant]
     Route: 048
     Dates: start: 20120609
  8. TRAMADOL HCL [Concomitant]
     Indication: PAIN
     Route: 048
     Dates: start: 20120613
  9. MABTHERA [Suspect]
     Route: 042
     Dates: start: 20111101, end: 20111118
  10. ATOSSA [Concomitant]
     Route: 048
     Dates: start: 20120401
  11. DEXAMETASON [Concomitant]
     Route: 048
     Dates: start: 20120609
  12. RANIGAST [Concomitant]
     Route: 048
     Dates: start: 20120609

REACTIONS (1)
  - BREAST CANCER [None]
